FAERS Safety Report 24089363 (Version 1)
Quarter: 2024Q3

REPORT INFORMATION
  Report Type: Spontaneous
  Country: CZ (occurrence: CZ)
  Receive Date: 20240715
  Receipt Date: 20240715
  Transmission Date: 20241017
  Serious: Yes (Other)
  Sender: BOEHRINGER INGELHEIM
  Company Number: CZ-NOVATINP-NOVATIN20240625_Lit

PATIENT
  Age: 74 Year
  Sex: Male

DRUGS (2)
  1. LINAGLIPTIN [Suspect]
     Active Substance: LINAGLIPTIN
     Indication: Product used for unknown indication
  2. METFORMIN [Suspect]
     Active Substance: METFORMIN HYDROCHLORIDE
     Indication: Product used for unknown indication

REACTIONS (4)
  - Vitamin B12 deficiency [Recovering/Resolving]
  - Diarrhoea [Recovering/Resolving]
  - Malnutrition [Recovering/Resolving]
  - Weight decreased [Recovering/Resolving]
